FAERS Safety Report 7678326-8 (Version None)
Quarter: 2011Q3

REPORT INFORMATION
  Report Type: 
  Country: None (occurrence: None)
  Receive Date: 20110811
  Receipt Date: 20110801
  Transmission Date: 20111222
  Serious: Yes (Hospitalization, Other)
  Sender: FDA-Public Use
  Company Number: US-JNJFOC-20090607985

PATIENT
  Sex: Female
  Weight: 43.2 kg

DRUGS (5)
  1. MERCAPTOPURINE [Concomitant]
  2. CORTICOSTEROID [Concomitant]
     Indication: COLITIS ULCERATIVE
  3. REMICADE [Suspect]
     Indication: COLITIS
     Dosage: RECEIVED 12 INFUSIONS DURING THIS TIME
     Route: 042
     Dates: start: 20060912, end: 20080806
  4. 5-AMINOSALICYLIC ACID [Concomitant]
     Route: 048
  5. REMICADE [Suspect]
     Indication: COLITIS ULCERATIVE
     Dosage: RECEIVED 12 INFUSIONS DURING THIS TIME
     Route: 042
     Dates: start: 20060912, end: 20080806

REACTIONS (3)
  - COLITIS ULCERATIVE [None]
  - INTESTINAL OBSTRUCTION [None]
  - DRUG INEFFECTIVE [None]
